FAERS Safety Report 8986477 (Version 2)
Quarter: 2012Q4

REPORT INFORMATION
  Report Type: Report from Study
  Country: DE (occurrence: DE)
  Receive Date: 20121226
  Receipt Date: 20121227
  Transmission Date: 20130627
  Serious: Yes (Hospitalization)
  Sender: FDA-Public Use
  Company Number: DE-ROCHE-1172654

PATIENT
  Sex: Male

DRUGS (8)
  1. TOCILIZUMAB [Suspect]
     Indication: RHEUMATOID ARTHRITIS
     Route: 065
     Dates: start: 201106
  2. METHOTREXATE [Suspect]
     Indication: RHEUMATOID ARTHRITIS
     Route: 048
     Dates: start: 201105
  3. FOLIC ACID [Concomitant]
     Route: 065
     Dates: start: 201007
  4. CALCIUM [Concomitant]
     Route: 065
     Dates: start: 20100713
  5. VIGANTOLETTEN [Concomitant]
     Route: 065
     Dates: start: 20100713
  6. DICLOFENAC [Concomitant]
     Route: 048
     Dates: start: 20100611
  7. PANTOZOL [Concomitant]
     Route: 048
     Dates: start: 20100611
  8. SIMVASTATIN [Concomitant]
     Route: 048
     Dates: start: 20110502

REACTIONS (1)
  - Soft tissue infection [Recovered/Resolved]
